FAERS Safety Report 15408685 (Version 1)
Quarter: 2018Q4

REPORT INFORMATION
  Report Type: Report from Study
  Country: IT (occurrence: IT)
  Receive Date: 20180920
  Receipt Date: 20180920
  Transmission Date: 20190204
  Serious: Yes (Hospitalization)
  Sender: FDA-Public Use
  Company Number: IT-TEVA-2018-IT-956670

PATIENT
  Age: 28 Year
  Sex: Female

DRUGS (3)
  1. EUTIROX 50 MICROGRAMMI COMPRESSE [Suspect]
     Active Substance: LEVOTHYROXINE SODIUM
     Route: 048
     Dates: start: 20180203, end: 20180203
  2. LORAZEPAM. [Suspect]
     Active Substance: LORAZEPAM
     Route: 048
     Dates: start: 20180203, end: 20180203
  3. KETOPROFEN LYSINE [Suspect]
     Active Substance: KETOPROFEN LYSINE
     Route: 048
     Dates: start: 20180203, end: 20180203

REACTIONS (2)
  - Sopor [Recovered/Resolved]
  - Drug abuse [Recovered/Resolved]

NARRATIVE: CASE EVENT DATE: 20180203
